FAERS Safety Report 6712766-6 (Version None)
Quarter: 2010Q2

REPORT INFORMATION
  Report Type: 
  Country: None (occurrence: None)
  Receive Date: 20100506
  Receipt Date: 20100428
  Transmission Date: 20101027
  Serious: Yes (Other)
  Sender: FDA-Public Use
  Company Number: JP-JNJFOC-20100404565

PATIENT
  Age: 42 Year
  Sex: Male

DRUGS (7)
  1. RISPERDAL [Suspect]
     Indication: SCHIZOPHRENIA
     Route: 048
  2. RISPERIDONE [Suspect]
     Indication: SCHIZOPHRENIA
     Route: 048
  3. DEPAKENE [Concomitant]
     Route: 048
  4. FAMOTIDINE [Concomitant]
     Route: 048
  5. ENZYME PREPARATIONS [Concomitant]
     Route: 048
  6. BIO-THREE [Concomitant]
     Dosage: 6 DF X 1 PER 1 DAY / TABLET
     Route: 048
  7. METHYCOBAL [Concomitant]
     Route: 048

REACTIONS (2)
  - HYPERVENTILATION [None]
  - NOCTURNAL DYSPNOEA [None]
